FAERS Safety Report 5106211-4 (Version None)
Quarter: 2006Q3

REPORT INFORMATION
  Report Type: 
  Country: None (occurrence: None)
  Receive Date: 20060912
  Receipt Date: 20060831
  Transmission Date: 20061208
  Serious: Yes (Other)
  Sender: FDA-Public Use
  Company Number: 2006103055

PATIENT
  Age: 55 Year
  Sex: Female
  Weight: 49 kg

DRUGS (9)
  1. EXUBERA [Suspect]
     Indication: DIABETES MELLITUS NON-INSULIN-DEPENDENT
     Dosage: (3 IN 1 D), ORAL
     Route: 048
     Dates: start: 20060710, end: 20060806
  2. INSULIN (INSULIN) [Concomitant]
  3. RAPAMUNE [Concomitant]
  4. ROCALTROL [Concomitant]
  5. CELLCEPT [Concomitant]
  6. TOREM (TORASEMIDE) [Concomitant]
  7. SPIRONOLACTONE [Concomitant]
  8. UROSOFALK (UROSODEOXYCHOLIC ACID) [Concomitant]
  9. INSULIN DETEMIR (INSULIN DETEMIR) [Concomitant]

REACTIONS (8)
  - ABDOMINAL PAIN [None]
  - COAGULOPATHY [None]
  - COUGH [None]
  - DIABETES MELLITUS INADEQUATE CONTROL [None]
  - HAEMOPTYSIS [None]
  - PLATELET COUNT DECREASED [None]
  - TREATMENT NONCOMPLIANCE [None]
  - VASCULAR INJURY [None]
